FAERS Safety Report 7469220-6 (Version None)
Quarter: 2011Q2

REPORT INFORMATION
  Report Type: 
  Country: None (occurrence: None)
  Receive Date: 20110510
  Receipt Date: 20110405
  Transmission Date: 20111010
  Serious: Yes (Other)
  Sender: FDA-Public Use
  Company Number: US-BAYER-201026125NA

PATIENT
  Age: 32 Year
  Sex: Female
  Weight: 59.41 kg

DRUGS (6)
  1. YASMIN [Suspect]
     Indication: PRODUCT USED FOR UNKNOWN INDICATION
     Dosage: UNK UNK, QD
     Route: 048
     Dates: start: 20090101, end: 20091201
  2. FIORICET [Concomitant]
  3. PROTONIX [Concomitant]
  4. NORCO [Concomitant]
  5. ALLEGRA [Concomitant]
  6. ALBUTEROL [Concomitant]

REACTIONS (2)
  - GALLBLADDER DISORDER [None]
  - CHOLECYSTITIS [None]
